FAERS Safety Report 6051567-1 (Version None)
Quarter: 2009Q1

REPORT INFORMATION
  Report Type: 
  Country: None (occurrence: None)
  Receive Date: 20090126
  Receipt Date: 20090119
  Transmission Date: 20090719
  Serious: Yes (Life-Threatening, Hospitalization)
  Sender: FDA-Public Use
  Company Number: B0554544A

PATIENT
  Age: 53 Year
  Sex: Male

DRUGS (7)
  1. AUGMENTIN '125' [Suspect]
     Indication: BRONCHOPNEUMOPATHY
     Dosage: 2G THREE TIMES PER DAY
     Route: 042
     Dates: start: 20081202, end: 20081204
  2. TAVANIC [Suspect]
     Indication: BRONCHOPNEUMOPATHY
     Dosage: 500MG TWICE PER DAY
     Route: 042
     Dates: start: 20081202, end: 20081204
  3. CREON [Concomitant]
     Route: 065
  4. STABLON [Concomitant]
     Route: 065
  5. AOTAL [Concomitant]
     Route: 065
  6. VIT B1 B6 [Concomitant]
     Route: 065
  7. HEPTAMYL [Concomitant]
     Route: 065

REACTIONS (1)
  - PANCYTOPENIA [None]
